FAERS Safety Report 7968370-5 (Version None)
Quarter: 2011Q4

REPORT INFORMATION
  Report Type: 
  Country: None (occurrence: None)
  Receive Date: 20111207
  Receipt Date: 20111125
  Transmission Date: 20120403
  Serious: Yes (Hospitalization, Other)
  Sender: FDA-Public Use
  Company Number: 2011MA017098

PATIENT
  Sex: Female

DRUGS (1)
  1. RAMIPRIL [Suspect]
     Indication: HYPERTENSION
     Dosage: 1.25 MG

REACTIONS (10)
  - DIZZINESS [None]
  - PALPITATIONS [None]
  - CEREBROVASCULAR ACCIDENT [None]
  - PANIC ATTACK [None]
  - HYPOAESTHESIA [None]
  - MIDDLE INSOMNIA [None]
  - HYPERHIDROSIS [None]
  - MYOCARDIAL INFARCTION [None]
  - HEADACHE [None]
  - APPARENT DEATH [None]
